FAERS Safety Report 6371508-7 (Version None)
Quarter: 2009Q3

REPORT INFORMATION
  Report Type: 
  Country: None (occurrence: None)
  Receive Date: 20090923
  Receipt Date: 20070920
  Transmission Date: 20100115
  Serious: Yes (Other)
  Sender: FDA-Public Use
  Company Number: US-ASTRAZENECA-2007UW15748

PATIENT
  Sex: Female
  Weight: 88.5 kg

DRUGS (9)
  1. SEROQUEL [Suspect]
     Indication: BIPOLAR DISORDER
     Route: 048
     Dates: start: 20060101
  2. SEROQUEL [Suspect]
     Indication: DEPRESSION
     Route: 048
     Dates: start: 20060101
  3. SEROQUEL [Suspect]
     Indication: ANXIETY
     Route: 048
     Dates: start: 20060101
  4. SEROQUEL [Suspect]
     Route: 048
     Dates: start: 20060131
  5. SEROQUEL [Suspect]
     Route: 048
     Dates: start: 20060131
  6. SEROQUEL [Suspect]
     Route: 048
     Dates: start: 20060131
  7. RISPERDAL [Concomitant]
     Dates: start: 20060101
  8. TRILEPTAL [Concomitant]
     Dates: start: 20051020
  9. PAXIL CR [Concomitant]
     Dates: start: 20040426

REACTIONS (2)
  - DIABETES MELLITUS [None]
  - DIABETIC KETOACIDOSIS [None]
